FAERS Safety Report 19126286 (Version 1)
Quarter: 2021Q2

REPORT INFORMATION
  Report Type: Spontaneous
  Country: US (occurrence: US)
  Receive Date: 20210412
  Receipt Date: 20210412
  Transmission Date: 20210717
  Serious: Yes (Hospitalization)
  Sender: FDA-Public Use
  Company Number: None

PATIENT
  Sex: Female

DRUGS (2)
  1. JAKAFI [Concomitant]
     Active Substance: RUXOLITINIB
  2. JAKAFI [Suspect]
     Active Substance: RUXOLITINIB

REACTIONS (1)
  - Leukaemia [None]
